FAERS Safety Report 8563606-4 (Version None)
Quarter: 2012Q3

REPORT INFORMATION
  Report Type: 
  Country: None (occurrence: None)
  Receive Date: 20120803
  Receipt Date: 20120725
  Transmission Date: 20120928
  Serious: Yes (Death, Hospitalization, Other)
  Sender: FDA-Public Use
  Company Number: US-BIOGENIDEC-2012BI018728

PATIENT
  Sex: Female

DRUGS (7)
  1. NEURONTIN [Concomitant]
  2. COUMADIN [Concomitant]
  3. AVONEX [Suspect]
     Indication: MULTIPLE SCLEROSIS
     Route: 030
     Dates: start: 19920101, end: 20061107
  4. OMEGA-3 FATTY ACIDS [Concomitant]
  5. CALCIUM CARBONATE [Concomitant]
  6. NEURONTIN [Concomitant]
  7. LISINOPRIL [Concomitant]

REACTIONS (8)
  - ARRHYTHMIA [None]
  - CEREBROVASCULAR ACCIDENT [None]
  - DEATH [None]
  - CHOLECYSTECTOMY [None]
  - DEEP VEIN THROMBOSIS [None]
  - SPINAL FUSION SURGERY [None]
  - ATRIAL FIBRILLATION [None]
  - GENERAL PHYSICAL HEALTH DETERIORATION [None]
